FAERS Safety Report 7595316-4 (Version None)
Quarter: 2011Q3

REPORT INFORMATION
  Report Type: 
  Country: None (occurrence: None)
  Receive Date: 20110707
  Receipt Date: 20110622
  Transmission Date: 20111222
  Serious: Yes (Hospitalization, Other)
  Sender: FDA-Public Use
  Company Number: DE-ELI_LILLY_AND_COMPANY-DE201106006287

PATIENT
  Sex: Female

DRUGS (15)
  1. FUROSEMIDE [Concomitant]
     Dosage: 40 MG, UNKNOWN
     Route: 065
  2. MIRTAZAPINE [Concomitant]
     Dosage: 30 MG, UNKNOWN
     Route: 065
  3. RAMIPRIL [Concomitant]
     Dosage: UNK
     Route: 065
  4. CREON [Concomitant]
     Dosage: UNK
     Route: 065
  5. NOVALGIN                           /06276704/ [Concomitant]
     Dosage: UNK
     Route: 065
  6. INSUMAN RAPID [Concomitant]
     Dosage: UNK
     Route: 065
  7. DIPIPERON [Concomitant]
     Dosage: 40 MG, UNKNOWN
     Route: 065
  8. SYMBICORD [Concomitant]
     Dosage: UNK
     Route: 065
  9. SPIRIVA [Concomitant]
     Dosage: UNK
     Route: 065
  10. PREDNISOLONE [Concomitant]
     Dosage: UNK
     Route: 065
  11. PANTOZAL [Concomitant]
  12. FORTEO [Suspect]
     Indication: OSTEOPOROSIS
     Dosage: UNK, QD
     Route: 058
     Dates: start: 20110504, end: 20110625
  13. INSULIN [Concomitant]
     Dosage: UNK
     Route: 065
  14. INSUMAN COMB [Concomitant]
     Dosage: UNK
     Route: 065
  15. CALCIUM CARBONATE [Concomitant]
     Dosage: UNK
     Route: 065

REACTIONS (21)
  - EPILEPSY [None]
  - SPINAL DECOMPRESSION [None]
  - FALL [None]
  - BLOOD PRESSURE FLUCTUATION [None]
  - EATING DISORDER [None]
  - BLOOD GLUCOSE FLUCTUATION [None]
  - SPINAL FRACTURE [None]
  - BONE PAIN [None]
  - HYPERTENSION [None]
  - BLOOD GLUCOSE ABNORMAL [None]
  - FEELING ABNORMAL [None]
  - VOMITING [None]
  - LIGAMENT SPRAIN [None]
  - MEMORY IMPAIRMENT [None]
  - MUSCULOSKELETAL PAIN [None]
  - SPINAL DISORDER [None]
  - HYPERHIDROSIS [None]
  - HYPOTENSION [None]
  - LOSS OF CONSCIOUSNESS [None]
  - CHILLS [None]
  - CIRCULATORY COLLAPSE [None]
